FAERS Safety Report 17669412 (Version 1)
Quarter: 2020Q2

REPORT INFORMATION
  Report Type: Spontaneous
  Country: DE (occurrence: DE)
  Receive Date: 20200415
  Receipt Date: 20200415
  Transmission Date: 20200713
  Serious: Yes (Life-Threatening, Hospitalization)
  Sender: FDA-Public Use
  Company Number: DE-TEVA-2020-DE-1223046

PATIENT
  Age: 46 Year
  Sex: Female

DRUGS (7)
  1. PREGABALIN. [Suspect]
     Active Substance: PREGABALIN
     Dosage: 600 MG
  2. LEVETIRACETAM. [Interacting]
     Active Substance: LEVETIRACETAM
     Dosage: 1500 MILLIGRAM DAILY;
  3. QUETIAPIN [Interacting]
     Active Substance: QUETIAPINE
     Dosage: 125 MG,
  4. OXYCODON [Interacting]
     Active Substance: OXYCODONE
     Dosage: 160 MG
  5. PANTOPRAZOL [Concomitant]
     Active Substance: PANTOPRAZOLE SODIUM
     Dosage: 40 MILLIGRAM DAILY;
  6. ETORICOXIB. [Concomitant]
     Active Substance: ETORICOXIB
     Dosage: 60 MILLIGRAM DAILY;
  7. RAMIPRIL. [Concomitant]
     Active Substance: RAMIPRIL
     Dosage: 5 MILLIGRAM DAILY;

REACTIONS (2)
  - Fall [Unknown]
  - Labelled drug-drug interaction medication error [Unknown]

NARRATIVE: CASE EVENT DATE: 20200119
